FAERS Safety Report 5268673-1 (Version None)
Quarter: 2007Q1

REPORT INFORMATION
  Report Type: 
  Country: None (occurrence: None)
  Receive Date: 20070313
  Receipt Date: 20070226
  Transmission Date: 20070707
  Serious: Yes (Life-Threatening)
  Sender: FDA-Public Use
  Company Number: 15824

PATIENT
  Age: 49 Year
  Sex: Female
  Weight: 54 kg

DRUGS (1)
  1. PACLITAXEL [Suspect]
     Dates: start: 20070102

REACTIONS (5)
  - BACK PAIN [None]
  - CHEST PAIN [None]
  - ERYTHEMA [None]
  - HYPERTENSION [None]
  - HYPOAESTHESIA FACIAL [None]
